FAERS Safety Report 6683171-6 (Version None)
Quarter: 2010Q2

REPORT INFORMATION
  Report Type: 
  Country: None (occurrence: None)
  Receive Date: 20100413
  Receipt Date: 20100330
  Transmission Date: 20101027
  Serious: Yes (Hospitalization)
  Sender: FDA-Public Use
  Company Number: 8035054

PATIENT
  Sex: Female
  Weight: 54 kg

DRUGS (6)
  1. CERTOLIZUMAB PEGOL (CDP870) [Suspect]
     Indication: RHEUMATOID ARTHRITIS
     Dosage: SEE IMAGE,  SUBCUTANEOUS
     Route: 058
     Dates: start: 20060203, end: 20060704
  2. CERTOLIZUMAB PEGOL (CDP870) [Suspect]
     Indication: RHEUMATOID ARTHRITIS
     Dosage: SEE IMAGE,  SUBCUTANEOUS
     Route: 058
     Dates: start: 20060804, end: 20080410
  3. CERTOLIZUMAB PEGOL (CDP870) [Suspect]
     Indication: RHEUMATOID ARTHRITIS
     Dosage: SEE IMAGE,  SUBCUTANEOUS
     Route: 058
     Dates: start: 20080424, end: 20080715
  4. METHOTREXATE [Concomitant]
  5. DICLOFENAC [Concomitant]
  6. OMEPRAZOLE [Concomitant]

REACTIONS (5)
  - DISSEMINATED TUBERCULOSIS [None]
  - INTERSTITIAL LUNG DISEASE [None]
  - LYMPHADENITIS [None]
  - NAUSEA [None]
  - TUBERCULOUS PLEURISY [None]
